FAERS Safety Report 7331824-9 (Version None)
Quarter: 2011Q1

REPORT INFORMATION
  Report Type: 
  Country: None (occurrence: None)
  Receive Date: 20110304
  Receipt Date: 20110228
  Transmission Date: 20110831
  Serious: Yes (Hospitalization)
  Sender: FDA-Public Use
  Company Number: DL2011-0147

PATIENT
  Age: 28 Year
  Sex: Female

DRUGS (4)
  1. DOXYCYCLINE [Concomitant]
  2. MISOPROSTOL [Suspect]
     Dosage: 800 MCG, BUCCAL
     Route: 002
     Dates: start: 20101208
  3. METRONIDAZOLE [Concomitant]
  4. MIFEPREX [Suspect]
     Indication: ABORTION INDUCED
     Dosage: 200 MG, ORAL
     Route: 048
     Dates: start: 20101207

REACTIONS (5)
  - SYNCOPE [None]
  - DIZZINESS [None]
  - ABORTION INCOMPLETE [None]
  - ANAEMIA [None]
  - DYSPNOEA [None]
